FAERS Safety Report 16267731 (Version 1)
Quarter: 2019Q2

REPORT INFORMATION
  Report Type: Spontaneous
  Country: GB (occurrence: GB)
  Receive Date: 20190503
  Receipt Date: 20190503
  Transmission Date: 20190711
  Serious: Yes (Other)
  Sender: FDA-Public Use
  Company Number: GB-TEVA-2019-GB-1043978

PATIENT
  Age: 57 Year
  Sex: Female
  Weight: 67 kg

DRUGS (11)
  1. OMEPRAZOLE. [Concomitant]
     Active Substance: OMEPRAZOLE
     Dosage: 1 DOSAGE FORMS DAILY;
     Dates: start: 20180815
  2. ACETYLSALICYLIC ACID [Concomitant]
     Active Substance: ASPIRIN
     Dosage: 1 DOSAGE FORMS DAILY;
     Dates: start: 20190325
  3. DARIFENACIN. [Concomitant]
     Active Substance: DARIFENACIN
     Dosage: 1 DOSAGE FORMS DAILY;
     Dates: start: 20180815
  4. CODEINE PHOSPHATE [Concomitant]
     Active Substance: CODEINE PHOSPHATE
     Dosage: TAKE ONE OR 2 4 TIMES A DAY WHEN REQUIRED
     Dates: start: 20190318, end: 20190326
  5. MEFENAMIC ACID. [Concomitant]
     Active Substance: MEFENAMIC ACID
     Dosage: 3 DOSAGE FORMS DAILY;
     Dates: start: 20180815, end: 20190218
  6. PARACETAMOL [Concomitant]
     Active Substance: ACETAMINOPHEN
     Dosage: TAKE TWO 4 TIMES/DAY WHEN REQUIRED
     Dates: start: 20190318, end: 20190326
  7. DOCUSATE SODIUM. [Concomitant]
     Active Substance: DOCUSATE SODIUM
     Dosage: 4 DOSAGE FORMS DAILY;
     Dates: start: 20190318, end: 20190326
  8. FLUCONAZOLE. [Concomitant]
     Active Substance: FLUCONAZOLE
     Dates: start: 20190115, end: 20190122
  9. CLOTRIMAZOLE. [Concomitant]
     Active Substance: CLOTRIMAZOLE
     Dates: start: 20190325
  10. CLOPIDOGREL [Suspect]
     Active Substance: CLOPIDOGREL BISULFATE
     Dosage: 75 MILLIGRAM DAILY;
     Dates: start: 20190318
  11. CO-AMOXICLAV [Concomitant]
     Active Substance: AMOXICILLIN\CLAVULANATE POTASSIUM
     Dosage: 3 DOSAGE FORMS DAILY;
     Dates: start: 20190108, end: 20190115

REACTIONS (1)
  - Throat tightness [Recovered/Resolved]
